FAERS Safety Report 23046433 (Version 1)
Quarter: 2023Q4

REPORT INFORMATION
  Report Type: Spontaneous
  Country: CR (occurrence: CR)
  Receive Date: 20231009
  Receipt Date: 20231009
  Transmission Date: 20240110
  Serious: Yes (Disabling, Other)
  Sender: FDA-Public Use
  Company Number: CR-TAKEDA-2023TUS094391

PATIENT
  Age: 72 Year
  Sex: Female

DRUGS (3)
  1. PANTOPRAZOLE MAGNESIUM [Suspect]
     Active Substance: PANTOPRAZOLE MAGNESIUM
     Indication: Barrett^s oesophagus
     Dosage: 40 MG, 1X/DAY
     Route: 048
  2. PREDNISOLONE [Concomitant]
     Active Substance: PREDNISOLONE
     Dosage: UNK UNK, QD
  3. IRBESARTAN [Concomitant]
     Active Substance: IRBESARTAN
     Dosage: UNK UNK, QD

REACTIONS (3)
  - Systemic lupus erythematosus [Unknown]
  - Gait inability [Unknown]
  - Off label use [Unknown]
